FAERS Safety Report 10053191 (Version 1)
Quarter: 2014Q2

REPORT INFORMATION
  Report Type: Spontaneous
  Country: US (occurrence: US)
  Receive Date: 20140402
  Receipt Date: 20140402
  Transmission Date: 20141212
  Serious: No
  Sender: FDA-Public Use
  Company Number: US-ROXANE LABORATORIES, INC.-2014-RO-00535RO

PATIENT
  Age: 54 Year
  Sex: Female

DRUGS (1)
  1. PREDNISONE [Suspect]
     Indication: ALVEOLITIS ALLERGIC
     Dosage: 40 MG
     Route: 065
     Dates: start: 20041015

REACTIONS (5)
  - Gastric ulcer [Unknown]
  - Bone loss [Unknown]
  - Alopecia [Unknown]
  - Weight increased [Unknown]
  - Lipohypertrophy [Unknown]
